FAERS Safety Report 17533447 (Version 1)
Quarter: 2020Q1

REPORT INFORMATION
  Report Type: Spontaneous
  Country: GB (occurrence: GB)
  Receive Date: 20200312
  Receipt Date: 20200312
  Transmission Date: 20200409
  Serious: Yes (Other)
  Sender: FDA-Public Use
  Company Number: GB-PFIZER INC-2020103147

PATIENT
  Age: 53 Year
  Sex: Female
  Weight: 123 kg

DRUGS (12)
  1. DOXYCYCLINE MONOHYDRATE [Suspect]
     Active Substance: DOXYCYCLINE
     Indication: LOWER RESPIRATORY TRACT INFECTION
     Dosage: 100 MG, UNK (1 TIMES)
     Route: 048
     Dates: start: 20200213
  2. LEMSIP COLD + FLU [CAFFEINE;PARACETAMOL;PHENYLEPHRINE HYDROCHLORIDE] [Concomitant]
     Dosage: UNK
  3. SERTRALINE [Concomitant]
     Active Substance: SERTRALINE HYDROCHLORIDE
     Dosage: UNK
  4. NIGHT NURSE [DEXTROMETHORPHAN HYDROBROMIDE;PARACETAMOL;PROMETHAZINE HY [Concomitant]
     Dosage: UNK
  5. PARACETAMOL [Concomitant]
     Active Substance: ACETAMINOPHEN
     Dosage: UNK
  6. IBUPROFEN. [Concomitant]
     Active Substance: IBUPROFEN
     Dosage: UNK
  7. OXYBUTYNIN. [Concomitant]
     Active Substance: OXYBUTYNIN CHLORIDE
     Dosage: UNK
  8. NAPROXEN. [Concomitant]
     Active Substance: NAPROXEN
     Dosage: UNK
  9. ERGOCALCIFEROL. [Concomitant]
     Active Substance: ERGOCALCIFEROL
     Dosage: UNK
  10. TRIFOLIUM PRATENSE [Concomitant]
     Active Substance: TRIFOLIUM PRATENSE FLOWER
     Dosage: UNK
  11. MAGNESIUM [Concomitant]
     Active Substance: MAGNESIUM
     Dosage: UNK
  12. EVENING PRIMROSE OIL [OENOTHERA BIENNIS OIL] [Concomitant]
     Dosage: UNK

REACTIONS (1)
  - Headache [Not Recovered/Not Resolved]

NARRATIVE: CASE EVENT DATE: 20200213
